FAERS Safety Report 9419746 (Version 8)
Quarter: 2019Q1

REPORT INFORMATION
  Report Type: Spontaneous
  Country: DE (occurrence: DE)
  Receive Date: 20130725
  Receipt Date: 20190206
  Transmission Date: 20190418
  Serious: Yes (Hospitalization, Congenital Anomaly, Other)
  Sender: FDA-Public Use
  Company Number: DE-PFIZER INC-2013213785

PATIENT
  Age: 9 Month
  Sex: Male
  Weight: 2.8 kg

DRUGS (8)
  1. PRAVASTATIN SODIUM. [Suspect]
     Active Substance: PRAVASTATIN SODIUM
     Indication: HYPERCHOLESTEROLAEMIA
     Dosage: UNK (0 TO 8TH GESTATIONAL WEEK)
     Route: 064
  2. METOPROLOL TARTRATE. [Suspect]
     Active Substance: METOPROLOL TARTRATE
     Indication: HYPERTENSION
     Dosage: UNK
     Route: 064
  3. CLOPIDOGREL [Suspect]
     Active Substance: CLOPIDOGREL BISULFATE
     Indication: ISCHAEMIC HEART DISEASE PROPHYLAXIS
     Dosage: 75 MG, DAILY
     Route: 064
  4. HYDRALAZINE HYDROCHLORIDE. [Suspect]
     Active Substance: HYDRALAZINE HYDROCHLORIDE
     Indication: HYPERTENSION
     Dosage: UNK
     Route: 064
  5. ASA [Suspect]
     Active Substance: ASPIRIN
     Indication: ISCHAEMIC HEART DISEASE PROPHYLAXIS
     Dosage: 100 MG, DAILY
     Route: 064
  6. RAMIPRIL. [Suspect]
     Active Substance: RAMIPRIL
     Indication: HYPERTENSION
     Dosage: UNK
     Route: 064
  7. METOPROLOL TARTRATE. [Suspect]
     Active Substance: METOPROLOL TARTRATE
     Indication: ISCHAEMIC HEART DISEASE PROPHYLAXIS
  8. NEPRESOL (DIHYDRALAZINE SULFATE) [Suspect]
     Active Substance: DIHYDRALAZINE SULFATE
     Indication: HYPERTENSION
     Dosage: UNK
     Route: 064

REACTIONS (20)
  - Off label use [None]
  - Maternal exposure during pregnancy [Unknown]
  - Shone complex [Unknown]
  - Patent ductus arteriosus [Unknown]
  - Mitral valve hypoplasia [Recovered/Resolved with Sequelae]
  - Coarctation of the aorta [Recovered/Resolved with Sequelae]
  - Foetal exposure during pregnancy [None]
  - Subvalvular aortic stenosis [Recovered/Resolved with Sequelae]
  - Congenital heart valve disorder [Recovered/Resolved with Sequelae]
  - Congenital aortic anomaly [Unknown]
  - Caesarean section [None]
  - Congenital aortic valve stenosis [Recovered/Resolved with Sequelae]
  - Atrial septal defect [Recovered/Resolved with Sequelae]
  - Ventricular septal defect [Unknown]
  - Congenital aortic stenosis [Recovered/Resolved with Sequelae]
  - Mitral valve disease [Unknown]
  - Aorta hypoplasia [Recovered/Resolved with Sequelae]
  - Seizure [Unknown]
  - Coarctation of the aorta [Recovered/Resolved with Sequelae]
  - Heart disease congenital [Unknown]

NARRATIVE: CASE EVENT DATE: 2005
